FAERS Safety Report 7941011-9 (Version None)
Quarter: 2011Q4

REPORT INFORMATION
  Report Type: 
  Country: None (occurrence: None)
  Receive Date: 20111128
  Receipt Date: 20111116
  Transmission Date: 20120403
  Serious: Yes (Hospitalization)
  Sender: FDA-Public Use
  Company Number: IT-JNJFOC-20111106595

PATIENT
  Sex: Male

DRUGS (2)
  1. LEVOFLOXACIN [Suspect]
     Indication: EAR INFECTION
     Route: 048
     Dates: start: 20111103, end: 20111103
  2. PREDNISONE [Concomitant]
     Route: 065
     Dates: start: 20111103, end: 20111103

REACTIONS (5)
  - PARAESTHESIA [None]
  - URTICARIA [None]
  - PRURITUS GENERALISED [None]
  - PALATAL OEDEMA [None]
  - TONGUE OEDEMA [None]
